FAERS Safety Report 14537441 (Version 3)
Quarter: 2018Q4

REPORT INFORMATION
  Report Type: Spontaneous
  Country: PL (occurrence: PL)
  Receive Date: 20180215
  Receipt Date: 20181003
  Transmission Date: 20190204
  Serious: Yes (Hospitalization)
  Sender: FDA-Public Use
  Company Number: PL-BAUSCH-BL-2018-003431

PATIENT
  Age: 12 Year
  Sex: Female
  Weight: 32 kg

DRUGS (22)
  1. CEFUROXIME. [Suspect]
     Active Substance: CEFUROXIME
     Indication: ULCER
  2. DIFADOL [Suspect]
     Active Substance: DICLOFENAC SODIUM
     Indication: KERATITIS
     Route: 065
  3. OPATANOL [Suspect]
     Active Substance: OLOPATADINE
     Indication: ULCER
  4. LOTEMAX [Suspect]
     Active Substance: LOTEPREDNOL ETABONATE
     Indication: ULCER
  5. ERYTHROMYCIN. [Suspect]
     Active Substance: ERYTHROMYCIN
     Indication: KERATITIS
     Route: 061
  6. TREHALOSE [Suspect]
     Active Substance: TREHALOSE
     Indication: ULCER
  7. LOTEMAX [Suspect]
     Active Substance: LOTEPREDNOL ETABONATE
     Indication: KERATITIS
     Route: 061
     Dates: start: 2013
  8. CORNEREGEL 50 MG/G, ZEL DO OCZU [Suspect]
     Active Substance: DEXPANTHENOL
     Indication: ULCER
  9. OFTAQUIX [Suspect]
     Active Substance: LEVOFLOXACIN
     Indication: ULCER
  10. CORNEREGEL 50 MG/G, ZEL DO OCZU [Suspect]
     Active Substance: DEXPANTHENOL
     Indication: KERATITIS
     Route: 061
     Dates: start: 2013
  11. DEXAVEN [Suspect]
     Active Substance: DEXAMETHASONE
     Indication: ULCER
  12. ERYTHROMYCIN. [Suspect]
     Active Substance: ERYTHROMYCIN
     Indication: ULCER
  13. TOBREX [Suspect]
     Active Substance: TOBRAMYCIN
     Indication: ULCER
  14. DEXAVEN [Suspect]
     Active Substance: DEXAMETHASONE
     Indication: KERATITIS
     Route: 065
     Dates: start: 2013
  15. INDOCOLLYRE [Suspect]
     Active Substance: INDOMETHACIN
     Indication: KERATITIS
     Route: 061
  16. INDOCOLLYRE [Suspect]
     Active Substance: INDOMETHACIN
     Indication: ULCER
  17. DIFADOL [Suspect]
     Active Substance: DICLOFENAC SODIUM
     Indication: ULCER
  18. OPATANOL [Suspect]
     Active Substance: OLOPATADINE
     Indication: KERATITIS
     Route: 061
     Dates: start: 2013
  19. TREHALOSE [Suspect]
     Active Substance: TREHALOSE
     Indication: KERATITIS
     Route: 061
  20. CEFUROXIME. [Suspect]
     Active Substance: CEFUROXIME
     Indication: KERATITIS
     Route: 042
  21. OFTAQUIX [Suspect]
     Active Substance: LEVOFLOXACIN
     Indication: KERATITIS
     Route: 061
     Dates: start: 2013
  22. TOBREX [Suspect]
     Active Substance: TOBRAMYCIN
     Indication: KERATITIS
     Route: 061
     Dates: start: 2013

REACTIONS (2)
  - Intentional product misuse [Unknown]
  - Drug ineffective [Unknown]
